FAERS Safety Report 21416661 (Version 1)
Quarter: 2022Q4

REPORT INFORMATION
  Report Type: Spontaneous
  Country: US (occurrence: US)
  Receive Date: 20221006
  Receipt Date: 20221006
  Transmission Date: 20230113
  Serious: No
  Sender: FDA-Public Use
  Company Number: US-ALLERGAN-2225711US

PATIENT

DRUGS (5)
  1. VRAYLAR [Suspect]
     Active Substance: CARIPRAZINE
     Indication: Product used for unknown indication
     Dosage: UNK
  2. LATUDA [Concomitant]
     Active Substance: LURASIDONE HYDROCHLORIDE
  3. LAMICTAL [Concomitant]
     Active Substance: LAMOTRIGINE
  4. CAPLYTA [Concomitant]
     Active Substance: LUMATEPERONE
  5. REXULTI [Concomitant]
     Active Substance: BREXPIPRAZOLE

REACTIONS (12)
  - Headache [Unknown]
  - Hallucination [Unknown]
  - Delusion [Unknown]
  - Hyperhidrosis [Unknown]
  - Confusional state [Unknown]
  - Musculoskeletal stiffness [Unknown]
  - Temperature regulation disorder [Unknown]
  - Swelling [Unknown]
  - Somnambulism [Unknown]
  - Tardive dyskinesia [Unknown]
  - Rash [Unknown]
  - Dizziness [Unknown]
